FAERS Safety Report 7863933-X (Version None)
Quarter: 2011Q4

REPORT INFORMATION
  Report Type: 
  Country: None (occurrence: None)
  Receive Date: 20111028
  Receipt Date: 20111020
  Transmission Date: 20120403
  Serious: No
  Sender: FDA-Public Use
  Company Number: US-BIOGENIDEC-2011BI040166

PATIENT
  Age: 64 Year
  Sex: Female

DRUGS (2)
  1. DETROL LA [Concomitant]
     Indication: BLADDER SPASM
  2. TYSABRI [Suspect]
     Indication: MULTIPLE SCLEROSIS
     Route: 042
     Dates: start: 20110607

REACTIONS (7)
  - PRURITUS [None]
  - MICTURITION URGENCY [None]
  - HYPOAESTHESIA [None]
  - FATIGUE [None]
  - DERMATITIS BULLOUS [None]
  - BLADDER SPASM [None]
  - ASTHENIA [None]
